FAERS Safety Report 10631258 (Version 1)
Quarter: 2014Q4

REPORT INFORMATION
  Report Type: Spontaneous
  Country: US (occurrence: US)
  Receive Date: 20141205
  Receipt Date: 20141205
  Transmission Date: 20150529
  Serious: No
  Sender: FDA-Public Use
  Company Number: US-BRISTOL-MYERS SQUIBB COMPANY-21375399

PATIENT
  Age: 35 Year
  Sex: Male

DRUGS (3)
  1. ABILIFY [Suspect]
     Active Substance: ARIPIPRAZOLE
     Indication: AUTISM
  2. ABILIFY [Suspect]
     Active Substance: ARIPIPRAZOLE
     Indication: TRISOMY 21
  3. ABILIFY [Suspect]
     Active Substance: ARIPIPRAZOLE
     Indication: DEPRESSION

REACTIONS (2)
  - Off label use [Unknown]
  - Drug ineffective [Unknown]
